FAERS Safety Report 23866808 (Version 3)
Quarter: 2024Q4

REPORT INFORMATION
  Report Type: Spontaneous
  Country: JP (occurrence: JP)
  Receive Date: 20240517
  Receipt Date: 20241001
  Transmission Date: 20250115
  Serious: Yes (Disabling, Other)
  Sender: GLAXOSMITHKLINE
  Company Number: None

PATIENT

DRUGS (8)
  1. TRELEGY ELLIPTA [Suspect]
     Active Substance: FLUTICASONE FUROATE\UMECLIDINIUM BROMIDE\VILANTEROL TRIFENATATE
     Indication: Asthma
     Dosage: 200 ?G, 1D
     Route: 055
     Dates: start: 20230815, end: 20230818
  2. MONTELUKAST [Concomitant]
     Active Substance: MONTELUKAST
     Indication: Asthma
     Dosage: 10 MG, 1D
     Route: 048
     Dates: start: 20230815
  3. THEOPHYLLINE [Concomitant]
     Active Substance: THEOPHYLLINE
     Indication: Asthma
     Dosage: 200 MG, BID
     Route: 048
     Dates: start: 20230815
  4. QUERCUS SALICINA STEM [Concomitant]
     Active Substance: QUERCUS SALICINA STEM
     Indication: Calculus urinary
     Dosage: 1350 MG, TID
     Route: 048
  5. TAMSULOSIN [Concomitant]
     Active Substance: TAMSULOSIN
     Indication: Benign prostatic hyperplasia
     Dosage: 0.2 MG, 1D
     Route: 048
  6. AMLODIPINE [Concomitant]
     Active Substance: AMLODIPINE BESYLATE
     Indication: Hypertension
     Dosage: 2.5 MG, 1D
     Route: 048
  7. SOLU-MEDROL [Concomitant]
     Active Substance: METHYLPREDNISOLONE SODIUM SUCCINATE
     Indication: Asthmatic crisis
     Dosage: 40 MG, TID
     Route: 041
     Dates: start: 20230807, end: 20230812
  8. FLUTICASONE FUROATE\VILANTEROL TRIFENATATE [Concomitant]
     Active Substance: FLUTICASONE FUROATE\VILANTEROL TRIFENATATE
     Indication: Asthma
     Dosage: 200 ?G, 1D
     Route: 055
     Dates: start: 20230808, end: 20230814

REACTIONS (2)
  - Serous retinal detachment [Not Recovered/Not Resolved]
  - Visual acuity reduced [Not Recovered/Not Resolved]

NARRATIVE: CASE EVENT DATE: 20230818
